FAERS Safety Report 23892508 (Version 1)
Quarter: 2024Q2

REPORT INFORMATION
  Report Type: Spontaneous
  Country: US (occurrence: None)
  Receive Date: 20240524
  Receipt Date: 20240524
  Transmission Date: 20240716
  Serious: No
  Sender: FDA-Public Use
  Company Number: US-ROCHE-3499370

PATIENT
  Sex: Female

DRUGS (1)
  1. OCREVUS [Suspect]
     Active Substance: OCRELIZUMAB
     Indication: Relapsing multiple sclerosis
     Dosage: SCHEDULED TO COME BACK IN 6 MOS FOR ANOTHER 300MG.
     Route: 065
     Dates: start: 20240122

REACTIONS (2)
  - Off label use [Unknown]
  - Bacterial colitis [Not Recovered/Not Resolved]

NARRATIVE: CASE EVENT DATE: 20240208
